FAERS Safety Report 26166084 (Version 1)
Quarter: 2025Q4

REPORT INFORMATION
  Report Type: Spontaneous
  Country: CN (occurrence: CN)
  Receive Date: 20251216
  Receipt Date: 20251216
  Transmission Date: 20260117
  Serious: Yes (Other)
  Sender: RANBAXY
  Company Number: CN-SUN PHARMACEUTICAL INDUSTRIES LTD-2025R1-533031

PATIENT
  Age: 9 Year
  Sex: Female

DRUGS (10)
  1. DECITABINE [Suspect]
     Active Substance: DECITABINE
     Indication: Immune-mediated cytopenia
     Dosage: UNK (3MG/M2)
     Route: 065
  2. OSELTAMIVIR [Suspect]
     Active Substance: OSELTAMIVIR
     Indication: Immune-mediated cytopenia
     Dosage: 75 MILLIGRAM, BID
     Route: 065
  3. PREDNISOLONE [Suspect]
     Active Substance: PREDNISOLONE
     Indication: Immune-mediated cytopenia
     Dosage: 2 MILLIGRAM/KILOGRAM, DAILY
     Route: 065
  4. PREDNISOLONE [Suspect]
     Active Substance: PREDNISOLONE
     Dosage: 0.4 MILLIGRAM/KILOGRAM, DAILY
     Route: 065
  5. ACETYLCYSTEINE [Suspect]
     Active Substance: ACETYLCYSTEINE
     Indication: Immune-mediated cytopenia
     Dosage: 200 MILLIGRAM, BID
     Route: 065
  6. AVATROMBOPAG [Suspect]
     Active Substance: AVATROMBOPAG
     Indication: Immune-mediated cytopenia
     Dosage: 30 MILLIGRAM, DAILY
     Route: 065
  7. CYCLOSPORINE [Suspect]
     Active Substance: CYCLOSPORINE
     Indication: Prophylaxis against graft versus host disease
     Dosage: UNK (150-200NG/ML)
     Route: 065
  8. ELTROMBOPAG [Suspect]
     Active Substance: ELTROMBOPAG
     Indication: Immune-mediated cytopenia
     Dosage: UNK (50-75MG/DAY)
     Route: 065
  9. ROMIPLOSTIM [Suspect]
     Active Substance: ROMIPLOSTIM
     Indication: Immune-mediated cytopenia
     Dosage: 10 MICROGRAM/KILOGRAM, WEEKLY
     Route: 065
  10. Immunoglobulin [Concomitant]
     Indication: Immune-mediated cytopenia
     Dosage: UNK (1G/KG, WEEKLY)
     Route: 042

REACTIONS (3)
  - Drug ineffective [Unknown]
  - Treatment failure [Unknown]
  - Thrombocytopenia [Recovered/Resolved]
